FAERS Safety Report 7827385-8 (Version None)
Quarter: 2011Q4

REPORT INFORMATION
  Report Type: 
  Country: None (occurrence: None)
  Receive Date: 20111020
  Receipt Date: 20111011
  Transmission Date: 20120403
  Serious: Yes (Other)
  Sender: FDA-Public Use
  Company Number: BR-JNJFOC-20111004817

PATIENT
  Age: 62 Year
  Sex: Female

DRUGS (1)
  1. ACETAMINOPHEN W/ CODEINE [Suspect]
     Indication: HEADACHE
     Dosage: 300MG/30MG; TREATMENT WITH TYLEX 10 DAYS AGO
     Route: 048
     Dates: start: 20111001

REACTIONS (1)
  - BLOOD PRESSURE DECREASED [None]
